FAERS Safety Report 19371880 (Version 1)
Quarter: 2021Q2

REPORT INFORMATION
  Report Type: Spontaneous
  Country: JP (occurrence: JP)
  Receive Date: 20210604
  Receipt Date: 20210604
  Transmission Date: 20210717
  Serious: Yes (Disabling, Other)
  Sender: FDA-Public Use
  Company Number: JP-REGENERON PHARMACEUTICALS, INC.-2021-55110

PATIENT

DRUGS (2)
  1. EYLEA [Suspect]
     Active Substance: AFLIBERCEPT
     Indication: MACULAR OEDEMA
     Dosage: 2 MG, ONCE, RIGHT EYE
     Route: 031
     Dates: start: 20200818, end: 20200818
  2. EYLEA [Suspect]
     Active Substance: AFLIBERCEPT
     Indication: RETINAL VEIN OCCLUSION

REACTIONS (3)
  - Retinal haemorrhage [Unknown]
  - Retinal artery occlusion [Not Recovered/Not Resolved]
  - Flat anterior chamber of eye [Recovered/Resolved]

NARRATIVE: CASE EVENT DATE: 20201009
